FAERS Safety Report 13798064 (Version 1)
Quarter: 2017Q3

REPORT INFORMATION
  Report Type: Spontaneous
  Country: US (occurrence: US)
  Receive Date: 20170726
  Receipt Date: 20170726
  Transmission Date: 20171127
  Serious: No
  Sender: FDA-Public Use
  Company Number: None

PATIENT
  Age: 70 Year
  Sex: Female
  Weight: 70.65 kg

DRUGS (9)
  1. LISINOPROL [Concomitant]
     Active Substance: LISINOPRIL
  2. DEPAKOTE [Concomitant]
     Active Substance: DIVALPROEX SODIUM
  3. COREG [Concomitant]
     Active Substance: CARVEDILOL
  4. SPIRAVA [Concomitant]
  5. IC PRIMIDONE 50MG [Suspect]
     Active Substance: PRIMIDONE
     Indication: TREMOR
     Dosage: QUANTITY:60 TABLET(S);OTHER FREQUENCY:1/2 AT BEDTIME;?
     Route: 048
     Dates: start: 20170713, end: 20170720
  6. FUROSEMIDE. [Concomitant]
     Active Substance: FUROSEMIDE
  7. PRADAXA [Concomitant]
     Active Substance: DABIGATRAN ETEXILATE MESYLATE
  8. ATORASTIN (LIPITOR) [Concomitant]
  9. FENOFIBRATE. [Concomitant]
     Active Substance: FENOFIBRATE

REACTIONS (7)
  - Thinking abnormal [None]
  - Hallucination, visual [None]
  - Emotional disorder [None]
  - Hypersomnia [None]
  - Loss of personal independence in daily activities [None]
  - Aphasia [None]
  - Gait disturbance [None]

NARRATIVE: CASE EVENT DATE: 20170713
